FAERS Safety Report 6394869-1 (Version None)
Quarter: 2009Q4

REPORT INFORMATION
  Report Type: 
  Country: None (occurrence: None)
  Receive Date: 20091009
  Receipt Date: 20090930
  Transmission Date: 20100525
  Serious: Yes (Hospitalization, Other)
  Sender: FDA-Public Use
  Company Number: US-ABBOTT-09P-163-0599960-00

PATIENT
  Sex: Female

DRUGS (2)
  1. HUMIRA [Suspect]
     Indication: PSORIASIS
     Dates: start: 20070101
  2. ACYCLOVIR [Suspect]
     Indication: ENCEPHALITIS
     Dates: start: 20090901

REACTIONS (9)
  - ASTHENIA [None]
  - BLOOD CREATININE INCREASED [None]
  - BLOOD UREA INCREASED [None]
  - DYSPHAGIA [None]
  - LOCKED-IN SYNDROME [None]
  - PARALYSIS [None]
  - SPEECH DISORDER [None]
  - VERTIGO [None]
  - WHITE BLOOD CELL COUNT INCREASED [None]
